FAERS Safety Report 23146513 (Version 1)
Quarter: 2023Q4

REPORT INFORMATION
  Report Type: Spontaneous
  Country: US (occurrence: US)
  Receive Date: 20231105
  Receipt Date: 20231105
  Transmission Date: 20240110
  Serious: Yes (Other)
  Sender: FDA-Public Use
  Company Number: US-EPICPHARMA-US-2023EPCLIT01695

PATIENT
  Age: 68 Year
  Sex: Male

DRUGS (2)
  1. CARBOPLATIN [Suspect]
     Active Substance: CARBOPLATIN
     Indication: Thyroid cancer
     Route: 065
  2. PACLITAXEL [Suspect]
     Active Substance: PACLITAXEL
     Indication: Thyroid cancer
     Route: 065

REACTIONS (7)
  - Dysphagia [Unknown]
  - Dry mouth [Unknown]
  - Hypothyroidism [Not Recovered/Not Resolved]
  - Fatigue [Unknown]
  - Mucosal inflammation [Unknown]
  - Dermatitis [Unknown]
  - Product use in unapproved indication [Unknown]
